FAERS Safety Report 25409777 (Version 1)
Quarter: 2025Q2

REPORT INFORMATION
  Report Type: Spontaneous
  Country: US (occurrence: US)
  Receive Date: 20250607
  Receipt Date: 20250607
  Transmission Date: 20250716
  Serious: No
  Sender: RIGEL PHARMACEUTICALS
  Company Number: US-RIGEL PHARMACEUTICALS, INC-20250300211

PATIENT
  Sex: Female

DRUGS (2)
  1. TAVALISSE [Suspect]
     Active Substance: FOSTAMATINIB
     Indication: Immune thrombocytopenia
     Dosage: 100 MG, BID
     Route: 048
     Dates: start: 20250321
  2. TAVALISSE [Suspect]
     Active Substance: FOSTAMATINIB
     Dosage: 100 MG,QD
     Route: 048
     Dates: start: 2025

REACTIONS (13)
  - Blood creatine increased [Unknown]
  - Cardiomegaly [Unknown]
  - Cardiac valve disease [Unknown]
  - Immunodeficiency [Unknown]
  - Somnolence [Unknown]
  - Panic attack [Unknown]
  - Product dose omission issue [Unknown]
  - Product prescribing issue [Unknown]
  - White blood cell count decreased [Unknown]
  - Blood chloride [Unknown]
  - Anxiety [Unknown]
  - Chest pain [Unknown]
  - Hypertension [Unknown]

NARRATIVE: CASE EVENT DATE: 20250101
